FAERS Safety Report 6093871-7 (Version None)
Quarter: 2009Q1

REPORT INFORMATION
  Report Type: 
  Country: None (occurrence: None)
  Receive Date: 20090219
  Receipt Date: 20081211
  Transmission Date: 20090719
  Serious: No
  Sender: FDA-Public Use
  Company Number: WAES 0812USA02605

PATIENT
  Sex: Female

DRUGS (1)
  1. JANUVIA [Suspect]
     Dosage: 100 MG/ DAILY/ PO
     Route: 048
     Dates: start: 20080101, end: 20081204

REACTIONS (5)
  - APPETITE DISORDER [None]
  - COUGH [None]
  - NASOPHARYNGITIS [None]
  - RHINORRHOEA [None]
  - WEIGHT DECREASED [None]
